FAERS Safety Report 4532839-6 (Version None)
Quarter: 2004Q4

REPORT INFORMATION
  Report Type: 
  Country: None (occurrence: None)
  Receive Date: 20041221
  Receipt Date: 20041214
  Transmission Date: 20050328
  Serious: Yes (Other)
  Sender: FDA-Public Use
  Company Number: PHBS2004KR16686

PATIENT
  Age: 31 Year
  Sex: Female
  Weight: 108 kg

DRUGS (2)
  1. CLOZARIL [Suspect]
     Indication: SCHIZOPHRENIA
     Dosage: 300 MG/D
     Route: 048
     Dates: start: 20040621, end: 20041108
  2. TOPIRMATE [Concomitant]
     Dosage: 50 MG/D
     Route: 065
     Dates: start: 20040705, end: 20041108

REACTIONS (3)
  - HAEMOGLOBIN DECREASED [None]
  - PLATELET COUNT INCREASED [None]
  - VAGINAL HAEMORRHAGE [None]
